FAERS Safety Report 17855981 (Version 1)
Quarter: 2020Q2

REPORT INFORMATION
  Report Type: Report from Study
  Country: IN (occurrence: IN)
  Receive Date: 20200603
  Receipt Date: 20200603
  Transmission Date: 20200714
  Serious: Yes (Other)
  Sender: FDA-Public Use
  Company Number: NVSC2020IN153734

PATIENT
  Age: 41 Year
  Sex: Male
  Weight: 110 kg

DRUGS (2)
  1. GALVUS MET [Suspect]
     Active Substance: METFORMIN HYDROCHLORIDE\VILDAGLIPTIN
     Dosage: (1000 MG METFORMIN, 50 MG VILDAGLIPTIN)
     Route: 048
  2. GALVUS MET [Suspect]
     Active Substance: METFORMIN HYDROCHLORIDE\VILDAGLIPTIN
     Indication: DIABETES MELLITUS
     Dosage: (500 MG METFORMIN, 50 MG VILDAGLIPTIN)
     Route: 048

REACTIONS (6)
  - Blood pressure increased [Unknown]
  - Asphyxia [Not Recovered/Not Resolved]
  - Weight increased [Unknown]
  - Dizziness [Not Recovered/Not Resolved]
  - Blood glucose increased [Unknown]
  - Hyperhidrosis [Not Recovered/Not Resolved]

NARRATIVE: CASE EVENT DATE: 20200529
